FAERS Safety Report 7573421-6 (Version None)
Quarter: 2011Q2

REPORT INFORMATION
  Report Type: 
  Country: None (occurrence: None)
  Receive Date: 20110627
  Receipt Date: 20110519
  Transmission Date: 20111010
  Serious: No
  Sender: FDA-Public Use
  Company Number: A0928050A

PATIENT
  Age: 50 Year
  Sex: Female

DRUGS (2)
  1. LAMICTAL [Suspect]
     Dosage: 100MG PER DAY
     Route: 048
     Dates: start: 20110101
  2. DILANTIN [Concomitant]

REACTIONS (4)
  - RASH [None]
  - RASH GENERALISED [None]
  - URTICARIA [None]
  - RASH PRURITIC [None]
